FAERS Safety Report 11335614 (Version 2)
Quarter: 2015Q3

REPORT INFORMATION
  Report Type: Spontaneous
  Country: US (occurrence: US)
  Receive Date: 20150804
  Receipt Date: 20150805
  Transmission Date: 20151125
  Serious: Yes (Other)
  Sender: FDA-Public Use
  Company Number: US-PFIZER INC-2015255359

PATIENT
  Age: 54 Year
  Sex: Female

DRUGS (14)
  1. TYLENOL [Concomitant]
     Active Substance: ACETAMINOPHEN
     Indication: ARTHRITIS
     Dosage: 650 MG, AS NEEDED (1-2 EVERY 8 HOURS)
  2. SINGULAIR [Concomitant]
     Active Substance: MONTELUKAST SODIUM
     Dosage: 10 MG, 1X/DAY
     Route: 048
  3. PREMARIN [Suspect]
     Active Substance: ESTROGENS, CONJUGATED
     Dosage: 0.625MG/1GM VAGINAL CREAM INSERT 0.65 IN VAGINA 2 TIMES WEEKLY
     Route: 067
  4. TRAMADOL. [Concomitant]
     Active Substance: TRAMADOL
     Indication: PAIN
     Dosage: UNK, AS NEEDED (1-2 TABLETS EVERY 4-6 HOURS)
  5. ASPIRIN (ASA) [Concomitant]
     Dosage: 81 MG, 1X/DAY
     Route: 048
  6. CARVEDILOL. [Concomitant]
     Active Substance: CARVEDILOL
     Dosage: 6.25 MG, 2X/DAY
     Route: 048
  7. METFORMIN HCL [Concomitant]
     Active Substance: METFORMIN HYDROCHLORIDE
     Dosage: 500 MG, 2X/DAY
     Route: 048
  8. FLUTICASONE PROPIONATE. [Concomitant]
     Active Substance: FLUTICASONE PROPIONATE
     Dosage: 50MCG/1ACTUATION NASAL SPRAY 2 SPRAY(S) IN EACH NOSTRIL DAILY, AS NEEDED
  9. FLUOCINONIDE. [Concomitant]
     Active Substance: FLUOCINONIDE
     Dosage: 0.05 %, 1X/DAY
     Route: 061
  10. VIVELLE [Concomitant]
     Active Substance: ESTRADIOL
     Dosage: 0.05 MG, WEEKLY
  11. LYRICA [Suspect]
     Active Substance: PREGABALIN
     Dosage: 75 MG, 3X/DAY
     Route: 048
  12. TRAZODONE HYDROCHLORIDE. [Concomitant]
     Active Substance: TRAZODONE HYDROCHLORIDE
     Dosage: 50 MG, AS NEEDED (1 TABLET AT BEDTIME)
  13. FLEXERIL [Concomitant]
     Active Substance: CYCLOBENZAPRINE HYDROCHLORIDE
     Indication: MUSCLE SPASMS
     Dosage: 10 MG, AS NEEDED (1 TABLET EVERY 6-8 HRS)
  14. ALLEGRA [Concomitant]
     Active Substance: FEXOFENADINE HYDROCHLORIDE
     Indication: HYPERSENSITIVITY
     Dosage: 180 MG, 1X/DAY
     Route: 048

REACTIONS (16)
  - Rhinitis allergic [Unknown]
  - Fibromyalgia [Unknown]
  - C-reactive protein increased [Unknown]
  - Gastrooesophageal reflux disease [Unknown]
  - Type 2 diabetes mellitus [Unknown]
  - Hyperhidrosis [Unknown]
  - Hyperlipidaemia [Unknown]
  - Hypertension [Unknown]
  - Vitamin D deficiency [Unknown]
  - Ovarian failure postoperative [Unknown]
  - Back pain [Unknown]
  - Skin papilloma [Unknown]
  - Transaminases increased [Unknown]
  - Insomnia [Unknown]
  - Sinus tachycardia [Unknown]
  - Overweight [Unknown]
